FAERS Safety Report 24546975 (Version 2)
Quarter: 2024Q4

REPORT INFORMATION
  Report Type: Spontaneous
  Country: FR (occurrence: FR)
  Receive Date: 20241025
  Receipt Date: 20241107
  Transmission Date: 20250115
  Serious: Yes (Life-Threatening, Other)
  Sender: AUROBINDO
  Company Number: FR-AFSSAPS-AM2024000855

PATIENT
  Age: 65 Year
  Sex: Male
  Weight: 62.5 kg

DRUGS (12)
  1. ATORVASTATIN [Suspect]
     Active Substance: ATORVASTATIN
     Indication: Poisoning deliberate
     Dosage: 160 MILLIGRAM, 1 TOTAL
     Route: 048
     Dates: start: 20230906, end: 20230906
  2. ESOMEPRAZOLE [Suspect]
     Active Substance: ESOMEPRAZOLE
     Indication: Poisoning deliberate
     Dosage: 160 MILLIGRAM, 1 TOTAL
     Route: 048
     Dates: start: 20230906, end: 20230906
  3. LEVETIRACETAM [Suspect]
     Active Substance: LEVETIRACETAM
     Indication: Poisoning deliberate
     Dosage: 10 GRAM, 1 TOTAL
     Route: 048
     Dates: start: 20230906, end: 20230906
  4. PERINDOPRIL [Suspect]
     Active Substance: PERINDOPRIL
     Indication: Poisoning deliberate
     Dosage: 32 MILLIGRAM, 1 TOTAL
     Route: 048
     Dates: start: 20230906, end: 20230906
  5. RILMENIDINE [Suspect]
     Active Substance: RILMENIDINE
     Indication: Poisoning deliberate
     Dosage: 8 MILLIGRAM, 1 TOTAL
     Route: 048
     Dates: start: 20230906, end: 20230906
  6. ASPIRIN [Suspect]
     Active Substance: ASPIRIN
     Indication: Poisoning deliberate
     Dosage: 800 MILLIGRAM, 1 TOTAL
     Route: 048
     Dates: start: 20230906, end: 20230906
  7. ATORVASTATIN [Suspect]
     Active Substance: ATORVASTATIN
     Indication: Poisoning deliberate
     Dosage: 160 MILLIGRAM
     Route: 048
     Dates: start: 20230906, end: 20230906
  8. ESOMEPRAZOLE [Suspect]
     Active Substance: ESOMEPRAZOLE
     Indication: Poisoning deliberate
     Dosage: 160 MILLIGRAM
     Route: 048
     Dates: start: 20230906, end: 20230906
  9. NICARDIPINE HYDROCHLORIDE [Suspect]
     Active Substance: NICARDIPINE HYDROCHLORIDE
     Indication: Poisoning deliberate
     Dosage: 12 DOSAGE FORM, 1 TOTAL
     Route: 048
     Dates: start: 20230906, end: 20230906
  10. LEVETIRACETAM [Suspect]
     Active Substance: LEVETIRACETAM
     Indication: Poisoning deliberate
     Dosage: 10 GRAM (10 GRAM, ONCE)
     Route: 048
     Dates: start: 20230906, end: 20230906
  11. PERINDOPRIL [Suspect]
     Active Substance: PERINDOPRIL
     Indication: Poisoning deliberate
     Dosage: 32 MILLIGRAM
     Route: 048
     Dates: start: 20230906, end: 20230906
  12. RILMENIDINE [Suspect]
     Active Substance: RILMENIDINE
     Indication: Poisoning deliberate
     Dosage: 8 MILLIGRAM
     Route: 048
     Dates: start: 20230906, end: 20230906

REACTIONS (3)
  - Circulatory collapse [Recovered/Resolved]
  - Poisoning deliberate [Unknown]
  - Intentional overdose [Recovered/Resolved]

NARRATIVE: CASE EVENT DATE: 20230906
